FAERS Safety Report 18180826 (Version 2)
Quarter: 2020Q4

REPORT INFORMATION
  Report Type: Spontaneous
  Country: US (occurrence: US)
  Receive Date: 20200821
  Receipt Date: 20201009
  Transmission Date: 20210113
  Serious: No
  Sender: FDA-Public Use
  Company Number: US-SUNOVION-2020SUN002370

PATIENT
  Sex: Female

DRUGS (4)
  1. LATUDA [Suspect]
     Active Substance: LURASIDONE HYDROCHLORIDE
     Dosage: UNK, WITHOUT FOOD
     Route: 048
  2. LATUDA [Suspect]
     Active Substance: LURASIDONE HYDROCHLORIDE
     Dosage: 120 MG
     Route: 048
     Dates: start: 202007
  3. LATUDA [Suspect]
     Active Substance: LURASIDONE HYDROCHLORIDE
     Dosage: LOWER DOSE WITH FOOD
     Route: 048
  4. LATUDA [Suspect]
     Active Substance: LURASIDONE HYDROCHLORIDE
     Dosage: IN THE EVENING WITH FOOD
     Route: 048

REACTIONS (4)
  - Decreased appetite [Unknown]
  - Somnolence [Not Recovered/Not Resolved]
  - Product administration error [Unknown]
  - Therapy cessation [Unknown]
